FAERS Safety Report 9859676 (Version 2)
Quarter: 2014Q1

REPORT INFORMATION
  Report Type: Report from Study
  Country: AU (occurrence: AU)
  Receive Date: 20140131
  Receipt Date: 20140326
  Transmission Date: 20141002
  Serious: Yes (Hospitalization, Other)
  Sender: FDA-Public Use
  Company Number: PHHY2012AU130052

PATIENT
  Age: 67 Year
  Sex: Female

DRUGS (10)
  1. ACLASTA [Suspect]
     Dosage: 5 MG, UNK
     Route: 042
     Dates: start: 20100629
  2. ACLASTA [Suspect]
     Dosage: 5 MG, UNK
     Route: 042
     Dates: start: 20110727
  3. ACLASTA [Suspect]
     Dosage: 5 MG, UNK
     Route: 042
     Dates: start: 20120731
  4. ACLASTA [Suspect]
     Dosage: 5 MG, UNK
     Route: 042
     Dates: start: 20130729
  5. EFUDIX [Concomitant]
     Dosage: UNK (APPLY AT NIGHT) MDU
     Dates: start: 20110923
  6. KEFLEX                                  /UNK/ [Concomitant]
     Dosage: 1 DF, Q6H
     Dates: start: 20120213
  7. NAPROSYN [Concomitant]
     Dosage: 1 DF,BD PRN
     Dates: start: 20060313
  8. NORFLOXACIN [Concomitant]
     Dosage: 1 DF, BID
     Dates: start: 20120215
  9. OVESTIN [Concomitant]
     Dosage: 1 DF, PRN (1 MG/G)
     Dates: start: 20110603
  10. PROTON PUMP INHIBITORS [Concomitant]
     Dosage: UNK

REACTIONS (5)
  - Humerus fracture [Recovered/Resolved]
  - Wound infection [Unknown]
  - Staphylococcal infection [Recovered/Resolved]
  - Fall [Unknown]
  - Traumatic fracture [Unknown]
